FAERS Safety Report 24266641 (Version 1)
Quarter: 2024Q3

REPORT INFORMATION
  Report Type: Spontaneous
  Country: JP (occurrence: JP)
  Receive Date: 20240830
  Receipt Date: 20240830
  Transmission Date: 20241017
  Serious: Yes (Hospitalization, Other)
  Sender: SANDOZ
  Company Number: JP-SANDOZ-SDZ2024JP075715

PATIENT
  Sex: Female

DRUGS (2)
  1. QUETIAPINE [Suspect]
     Active Substance: QUETIAPINE
     Indication: Product used for unknown indication
     Dosage: 14000 MG
     Route: 048
     Dates: start: 20240507
  2. QUETIAPINE [Suspect]
     Active Substance: QUETIAPINE
     Dosage: 22000 MG
     Route: 048
     Dates: start: 20240804

REACTIONS (5)
  - Hallucination [Unknown]
  - Urinary retention [Unknown]
  - Overdose [Unknown]
  - Amnesia [Not Recovered/Not Resolved]
  - Confusional state [Unknown]

NARRATIVE: CASE EVENT DATE: 20240507
